FAERS Safety Report 14426307 (Version 7)
Quarter: 2019Q3

REPORT INFORMATION
  Report Type: Spontaneous
  Country: US (occurrence: US)
  Receive Date: 20180123
  Receipt Date: 20190913
  Transmission Date: 20191004
  Serious: Yes (Hospitalization)
  Sender: FDA-Public Use
  Company Number: US-ACTELION-A-NJ2018-166243

PATIENT
  Age: 46 Year
  Sex: Female

DRUGS (1)
  1. TRACLEER [Suspect]
     Active Substance: BOSENTAN
     Indication: PULMONARY ARTERIAL HYPERTENSION
     Dosage: 125 MG, BID
     Route: 048
     Dates: start: 20090118

REACTIONS (4)
  - Product dose omission [Unknown]
  - Dyspnoea [Unknown]
  - Feeling abnormal [Unknown]
  - Cardiac failure [Unknown]

NARRATIVE: CASE EVENT DATE: 20180112
